FAERS Safety Report 5735892-7 (Version None)
Quarter: 2008Q2

REPORT INFORMATION
  Report Type: 
  Country: None (occurrence: None)
  Receive Date: 20080509
  Receipt Date: 20080509
  Transmission Date: 20081010
  Serious: Yes (Life-Threatening, Other)
  Sender: FDA-Public Use
  Company Number: None

PATIENT
  Age: 42 Year
  Sex: Female
  Weight: 65.318 kg

DRUGS (1)
  1. LYRICA [Suspect]
     Indication: TRIGEMINAL NEURALGIA
     Dosage: 600 MG 3X PO
     Route: 048
     Dates: start: 20061118, end: 20080508

REACTIONS (17)
  - ARTHRALGIA [None]
  - DEPRESSED LEVEL OF CONSCIOUSNESS [None]
  - DIPLOPIA [None]
  - FLUID RETENTION [None]
  - FUNGAL INFECTION [None]
  - HYPERPHAGIA [None]
  - NAIL INFECTION [None]
  - NERVOUS SYSTEM DISORDER [None]
  - OEDEMA [None]
  - PALPITATIONS [None]
  - PRURITUS [None]
  - RHEUMATOID ARTHRITIS [None]
  - SKIN ULCER [None]
  - SOMNOLENCE [None]
  - VISUAL DISTURBANCE [None]
  - WEIGHT INCREASED [None]
  - WHITE BLOOD CELL COUNT DECREASED [None]
